FAERS Safety Report 12716529 (Version 1)
Quarter: 2016Q3

REPORT INFORMATION
  Report Type: Report from Study
  Country: US (occurrence: US)
  Receive Date: 20160906
  Receipt Date: 20160906
  Transmission Date: 20161109
  Serious: Yes (Other)
  Sender: FDA-Public Use
  Company Number: US-BRISTOL-MYERS SQUIBB COMPANY-BMS-2002-000026

PATIENT
  Age: 26 Year
  Sex: Female

DRUGS (3)
  1. VIRACEPT [Suspect]
     Active Substance: NELFINAVIR MESYLATE
     Indication: ANTIRETROVIRAL THERAPY
     Dosage: 2500 MG, QD
     Route: 048
     Dates: start: 20020131
  2. EPIVIR [Suspect]
     Active Substance: LAMIVUDINE
     Indication: ANTIRETROVIRAL THERAPY
     Dosage: 300 MG, QD
     Route: 048
     Dates: start: 20020131
  3. STAVUDINE. [Suspect]
     Active Substance: STAVUDINE
     Indication: ANTIRETROVIRAL THERAPY
     Dosage: 80 MG, QD
     Route: 048
     Dates: start: 20020131

REACTIONS (2)
  - Maternal exposure during pregnancy [Recovered/Resolved]
  - Foetal death [Unknown]
